FAERS Safety Report 21491920 (Version 1)
Quarter: 2022Q4

REPORT INFORMATION
  Report Type: Report from Study
  Country: None (occurrence: A1)
  Receive Date: 20221021
  Receipt Date: 20221021
  Transmission Date: 20230113
  Serious: Yes (Other)
  Sender: FDA-Public Use
  Company Number: A1-Heyl Chemisch-pharmazeutische Fabrik-2134070

PATIENT
  Age: 47 Year

DRUGS (2)
  1. UNSPECIFIED INGREDIENT [Suspect]
     Active Substance: UNSPECIFIED INGREDIENT
     Route: 048
  2. IXEKIZUMAB [Suspect]
     Active Substance: IXEKIZUMAB
     Route: 065

REACTIONS (1)
  - Hepatitis B reactivation [None]
